FAERS Safety Report 8780375 (Version 1)
Quarter: 2012Q4

REPORT INFORMATION
  Report Type: Spontaneous
  Country: US (occurrence: None)
  Receive Date: 20120905
  Receipt Date: 20120905
  Transmission Date: 20130627
  Serious: Yes (Other)
  Sender: FDA-Public Use
  Company Number: None

PATIENT
  Age: 28 Year
  Sex: Female
  Weight: 63.5 kg

DRUGS (1)
  1. PHENAZOPYRIDINE [Suspect]
     Dosage: 1 tablet TID po
     Route: 048
     Dates: start: 20120901, end: 20120901

REACTIONS (6)
  - Rash [None]
  - Urine output decreased [None]
  - Chromaturia [None]
  - Pruritus [None]
  - Pyrexia [None]
  - Confusional state [None]
